FAERS Safety Report 15819044 (Version 1)
Quarter: 2019Q1

REPORT INFORMATION
  Report Type: Spontaneous
  Country: US (occurrence: US)
  Receive Date: 20190114
  Receipt Date: 20190114
  Transmission Date: 20190417
  Serious: No
  Sender: FDA-Public Use
  Company Number: US-ROCHE-2182237

PATIENT
  Sex: Female
  Weight: 51 kg

DRUGS (2)
  1. NUTROPIN [Suspect]
     Active Substance: SOMATROPIN
     Dosage: 10MG PEN
     Route: 058
     Dates: start: 201803
  2. NUTROPIN [Suspect]
     Active Substance: SOMATROPIN
     Indication: PRODUCT USED FOR UNKNOWN INDICATION
     Dosage: NUSPIN 5 INJECTION
     Route: 065
     Dates: start: 201802

REACTIONS (2)
  - Fatigue [Recovering/Resolving]
  - Arthralgia [Recovering/Resolving]
